FAERS Safety Report 7574695-8 (Version None)
Quarter: 2011Q2

REPORT INFORMATION
  Report Type: 
  Country: None (occurrence: None)
  Receive Date: 20110627
  Receipt Date: 20110621
  Transmission Date: 20111010
  Serious: No
  Sender: FDA-Public Use
  Company Number: US-PFIZER INC-2005091290

PATIENT
  Sex: Male
  Weight: 82.54 kg

DRUGS (2)
  1. ZOLOFT [Suspect]
     Dosage: 3/4 OF A 50 MG TABLET
     Dates: end: 20020101
  2. ZOLOFT [Suspect]
     Indication: DEPRESSION
     Dosage: 25 MG, DAILY
     Route: 048
     Dates: start: 20011124

REACTIONS (7)
  - DECREASED APPETITE [None]
  - LIBIDO DECREASED [None]
  - FATIGUE [None]
  - INSOMNIA [None]
  - SEXUAL DYSFUNCTION [None]
  - EXERCISE TOLERANCE DECREASED [None]
  - LABORATORY TEST ABNORMAL [None]
